FAERS Safety Report 4839640-4 (Version None)
Quarter: 2005Q4

REPORT INFORMATION
  Report Type: 
  Country: None (occurrence: None)
  Receive Date: 20051129
  Receipt Date: 20050428
  Transmission Date: 20060501
  Serious: No
  Sender: FDA-Public Use
  Company Number: US-GLAXOSMITHKLINE-A0556221A

PATIENT
  Age: 17 Year
  Sex: Male

DRUGS (4)
  1. WELLBUTRIN [Suspect]
     Indication: DEPRESSION
     Dosage: 100MG TWICE PER DAY
     Route: 048
  2. WELLBUTRIN [Suspect]
     Dosage: 300MG PER DAY
     Route: 048
  3. STRATTERA [Suspect]
     Indication: DEPRESSION
     Dosage: 40MG PER DAY
     Route: 048
  4. CONCERTA [Suspect]
     Indication: DEPRESSION
     Dosage: 18MG PER DAY
     Route: 048

REACTIONS (5)
  - ANXIETY [None]
  - DEPRESSION [None]
  - DRUG INEFFECTIVE [None]
  - DRUG INTERACTION [None]
  - HEADACHE [None]
